FAERS Safety Report 6991656-8 (Version None)
Quarter: 2010Q3

REPORT INFORMATION
  Report Type: 
  Country: None (occurrence: None)
  Receive Date: 20100915
  Receipt Date: 20100915
  Transmission Date: 20110219
  Serious: No
  Sender: FDA-Public Use
  Company Number: None

PATIENT
  Age: 66 Year
  Sex: Female

DRUGS (1)
  1. ROLAIDS [Suspect]
     Indication: DYSPEPSIA
     Dosage: 2    1-  (EARLY IN 2010 - BEFORE SUMMER)

REACTIONS (5)
  - DIARRHOEA [None]
  - MALAISE [None]
  - PRODUCT CONTAMINATION CHEMICAL [None]
  - PRODUCT QUALITY ISSUE [None]
  - TINNITUS [None]
